FAERS Safety Report 25885002 (Version 3)
Quarter: 2025Q4

REPORT INFORMATION
  Report Type: Report from Study
  Country: IN (occurrence: IN)
  Receive Date: 20251006
  Receipt Date: 20251030
  Transmission Date: 20260118
  Serious: Yes (Death, Other)
  Sender: INCYTE
  Company Number: IN-002147023-NVSC2024IN243523

PATIENT
  Age: 63 Year

DRUGS (8)
  1. RUXOLITINIB [Suspect]
     Active Substance: RUXOLITINIB
     Indication: Myelofibrosis
     Dosage: 10 MG, BID
  2. RUXOLITINIB [Suspect]
     Active Substance: RUXOLITINIB
     Indication: Polycythaemia vera
     Dosage: 20 MG, BID (1/2)
     Route: 065
  3. RUXOLITINIB [Suspect]
     Active Substance: RUXOLITINIB
     Indication: Graft versus host disease
     Dosage: 20 MG, OTHER (PRESCRIBED JAKAVI - 20 MG (1/2 - 0 -1/2))
  4. RUXOLITINIB [Suspect]
     Active Substance: RUXOLITINIB
     Indication: Janus kinase 2 mutation
     Dosage: 20 MG, BID (1/2 - 0 - 1/2)
  5. RUXOLITINIB [Suspect]
     Active Substance: RUXOLITINIB
     Dosage: 20 MG, BID (1/2)
     Route: 065
  6. RUXOLITINIB [Suspect]
     Active Substance: RUXOLITINIB
     Dosage: 20 MG, BID
  7. RUXOLITINIB [Suspect]
     Active Substance: RUXOLITINIB
     Dosage: 20 MG, QD
  8. RUXOLITINIB [Suspect]
     Active Substance: RUXOLITINIB
     Dosage: UNK

REACTIONS (22)
  - General physical health deterioration [Fatal]
  - Pyrexia [Fatal]
  - Transfusion related complication [Fatal]
  - Haemoglobin decreased [Unknown]
  - Type 2 diabetes mellitus [Unknown]
  - Gastric varices [Unknown]
  - Toothache [Unknown]
  - Fatigue [Recovering/Resolving]
  - Platelet count decreased [Unknown]
  - Haematocrit decreased [Unknown]
  - Red blood cell count decreased [Unknown]
  - Splenomegaly [Unknown]
  - Red cell distribution width increased [Unknown]
  - Wrong technique in product usage process [Unknown]
  - Blood glucose abnormal [Unknown]
  - Abdominal pain [Unknown]
  - Abdominal distension [Unknown]
  - Hypotension [Unknown]
  - Blood creatinine abnormal [Unknown]
  - Varices oesophageal [Unknown]
  - Laboratory test abnormal [Unknown]
  - Off label use [Unknown]
